FAERS Safety Report 6962013-5 (Version None)
Quarter: 2010Q3

REPORT INFORMATION
  Report Type: 
  Country: None (occurrence: None)
  Receive Date: 20100902
  Receipt Date: 20100826
  Transmission Date: 20110219
  Serious: Yes (Hospitalization)
  Sender: FDA-Public Use
  Company Number: FR-NOVOPROD-313885

PATIENT
  Age: 51 Year
  Sex: Female

DRUGS (3)
  1. VICTOZA [Suspect]
     Indication: TYPE 2 DIABETES MELLITUS
     Dosage: UK/SC
     Route: 058
     Dates: start: 20100628, end: 20100727
  2. METFORMIN [Concomitant]
     Indication: DIABETES MELLITUS
     Dosage: UK/PO
     Route: 048
     Dates: start: 20080101, end: 20100727
  3. RENITEC                            /00574901/ [Concomitant]
     Dosage: 5 MG, QD
     Route: 048
     Dates: start: 20080101, end: 20100727

REACTIONS (3)
  - ABDOMINAL PAIN [None]
  - HYPERLIPASAEMIA [None]
  - RENAL FAILURE ACUTE [None]
